FAERS Safety Report 18703442 (Version 1)
Quarter: 2021Q1

REPORT INFORMATION
  Report Type: Spontaneous
  Country: US (occurrence: US)
  Receive Date: 20210105
  Receipt Date: 20210105
  Transmission Date: 20210419
  Serious: No
  Sender: FDA-Public Use
  Company Number: US-WALMART PREMIER BRANDS OF AMERICA-2103964

PATIENT
  Age: 68 Year
  Sex: Male

DRUGS (3)
  1. MUPIROCIN. [Concomitant]
     Active Substance: MUPIROCIN
  2. DIPHENHYDRAMINE HYDROCHLORIDE 25MG [Concomitant]
     Active Substance: DIPHENHYDRAMINE HYDROCHLORIDE
  3. CALAMINE PLUS PRAMOXINE HCL [Suspect]
     Active Substance: FERRIC OXIDE RED\PRAMOXINE HYDROCHLORIDE\ZINC OXIDE
     Indication: PRURITUS
     Route: 003
     Dates: start: 20201112, end: 20201112

REACTIONS (1)
  - Bacterial infection [Recovered/Resolved]

NARRATIVE: CASE EVENT DATE: 20201112
